FAERS Safety Report 5721422-2 (Version None)
Quarter: 2008Q2

REPORT INFORMATION
  Report Type: 
  Country: None (occurrence: None)
  Receive Date: 20080429
  Receipt Date: 20080417
  Transmission Date: 20081010
  Serious: Yes (Hospitalization, Other)
  Sender: FDA-Public Use
  Company Number: US-JNJFOC-20080102436

PATIENT
  Sex: Female

DRUGS (18)
  1. LEVAQUIN [Suspect]
     Indication: PNEUMONIA
     Route: 042
  2. LEVAQUIN [Suspect]
     Route: 048
  3. SOLU-MEDROL [Concomitant]
     Route: 048
  4. ATROVENT [Concomitant]
     Route: 048
  5. ASPIRIN [Concomitant]
     Route: 048
  6. TYLENOL [Concomitant]
     Route: 048
  7. LOVENOX [Concomitant]
     Route: 065
  8. MOTRIN [Concomitant]
     Route: 065
  9. SURFAK [Concomitant]
     Route: 065
  10. PLENDIL [Concomitant]
     Route: 065
  11. ADVIR [Concomitant]
     Route: 065
  12. CALCIUM [Concomitant]
     Route: 065
  13. EVISTA [Concomitant]
     Route: 065
  14. ROBITUSSIN [Concomitant]
     Route: 065
  15. PRINIVIL [Concomitant]
     Route: 065
  16. LOPRESSOR [Concomitant]
     Route: 065
  17. BUMEX [Concomitant]
     Route: 042
  18. VENTOLIN [Concomitant]
     Route: 048

REACTIONS (2)
  - ELECTROCARDIOGRAM REPOLARISATION ABNORMALITY [None]
  - VENTRICULAR TACHYCARDIA [None]
